FAERS Safety Report 18501376 (Version 1)
Quarter: 2020Q4

REPORT INFORMATION
  Report Type: Spontaneous
  Country: CN (occurrence: CN)
  Receive Date: 20201113
  Receipt Date: 20201113
  Transmission Date: 20210114
  Serious: Yes (Other)
  Sender: FDA-Public Use
  Company Number: CN-BAYER-2020-193979

PATIENT
  Sex: Female

DRUGS (2)
  1. CLARITYNE 10 MG [Suspect]
     Active Substance: LORATADINE
     Indication: RHINITIS ALLERGIC
     Dosage: 1 DF, QD
     Route: 048
     Dates: start: 20200909
  2. CLARITYNE 10 MG [Suspect]
     Active Substance: LORATADINE
     Indication: SINUSITIS

REACTIONS (4)
  - Dry mouth [None]
  - Drug ineffective [None]
  - Abnormal faeces [None]
  - Liver injury [None]

NARRATIVE: CASE EVENT DATE: 2020
